FAERS Safety Report 25316643 (Version 1)
Quarter: 2025Q2

REPORT INFORMATION
  Report Type: Report from Study
  Country: CA (occurrence: CA)
  Receive Date: 20250515
  Receipt Date: 20250515
  Transmission Date: 20250716
  Serious: Yes (Other)
  Sender: CELLTRION
  Company Number: CA-CELLTRION INC.-2025CA014144

PATIENT

DRUGS (14)
  1. RITUXIMAB [Suspect]
     Active Substance: RITUXIMAB
     Indication: Rheumatoid arthritis
     Route: 065
  2. RITUXIMAB [Suspect]
     Active Substance: RITUXIMAB
     Route: 065
  3. ACTEMRA [Suspect]
     Active Substance: TOCILIZUMAB
     Indication: Rheumatoid arthritis
     Dosage: 800 MG, 1 EVERY 4 WEEKS
     Route: 042
  4. FOLIC ACID [Concomitant]
     Active Substance: FOLIC ACID
  5. GLICLAZIDE [Concomitant]
     Active Substance: GLICLAZIDE
  6. FERROUS SULFATE ANHYDROUS [Concomitant]
     Active Substance: FERROUS SULFATE ANHYDROUS
  7. JARDIANCE [Concomitant]
     Active Substance: EMPAGLIFLOZIN
  8. METFORMIN HYDROCHLORIDE\SITAGLIPTIN PHOSPHATE [Concomitant]
     Active Substance: METFORMIN HYDROCHLORIDE\SITAGLIPTIN PHOSPHATE
  9. PANTOPRAZOLE SODIUM [Concomitant]
     Active Substance: PANTOPRAZOLE SODIUM
  10. PREDNISONE [Concomitant]
     Active Substance: PREDNISONE
  11. RAMIPRIL [Concomitant]
     Active Substance: RAMIPRIL
  12. ROSUVASTATIN [Concomitant]
     Active Substance: ROSUVASTATIN
  13. SULFASALAZINE [Concomitant]
     Active Substance: SULFASALAZINE
  14. DULOXETINE HYDROCHLORIDE [Concomitant]
     Active Substance: DULOXETINE HYDROCHLORIDE

REACTIONS (2)
  - Synovitis [Unknown]
  - Weight decreased [Unknown]
